FAERS Safety Report 25540652 (Version 2)
Quarter: 2025Q3

REPORT INFORMATION
  Report Type: Spontaneous
  Country: EU (occurrence: EU)
  Receive Date: 20250710
  Receipt Date: 20250818
  Transmission Date: 20251020
  Serious: Yes (Other)
  Sender: PFIZER
  Company Number: EU-PFIZER INC-PV202500081574

PATIENT
  Age: 64 Year
  Sex: Female

DRUGS (5)
  1. IBRANCE [Suspect]
     Active Substance: PALBOCICLIB
     Dates: start: 20231222
  2. IBRANCE [Suspect]
     Active Substance: PALBOCICLIB
     Dates: start: 20240401
  3. LETROZOLE [Suspect]
     Active Substance: LETROZOLE
     Dates: start: 20231222
  4. LETROZOLE [Suspect]
     Active Substance: LETROZOLE
     Dates: start: 20240401
  5. DENOSUMAB [Suspect]
     Active Substance: DENOSUMAB
     Dates: start: 20231222

REACTIONS (4)
  - Cerebrovascular accident [Unknown]
  - Hemiparesis [Unknown]
  - Aphasia [Unknown]
  - Bone lesion [Unknown]

NARRATIVE: CASE EVENT DATE: 20240122
